FAERS Safety Report 16296009 (Version 1)
Quarter: 2019Q2

REPORT INFORMATION
  Report Type: Spontaneous
  Country: US (occurrence: US)
  Receive Date: 20190510
  Receipt Date: 20190510
  Transmission Date: 20190711
  Serious: Yes (Death, Other)
  Sender: FDA-Public Use
  Company Number: US-BRACCO-2019US02157

PATIENT
  Age: 67 Year
  Sex: Female

DRUGS (1)
  1. PROHANCE [Suspect]
     Active Substance: GADOTERIDOL
     Indication: X-RAY
     Dosage: 5 ML, SINGLE
     Route: 037

REACTIONS (4)
  - Incorrect route of product administration [None]
  - Cerebral infarction [Fatal]
  - Encephalopathy [Fatal]
  - Off label use [None]
